FAERS Safety Report 19202016 (Version 1)
Quarter: 2021Q2

REPORT INFORMATION
  Report Type: Spontaneous
  Country: SK (occurrence: SK)
  Receive Date: 20210502
  Receipt Date: 20210502
  Transmission Date: 20210717
  Serious: Yes (Other)
  Sender: FDA-Public Use
  Company Number: NVSC2021SK088420

PATIENT
  Age: 34 Year
  Sex: Female

DRUGS (1)
  1. DOXYHEXAL TABS [Suspect]
     Active Substance: DOXYCYCLINE
     Indication: PRODUCT USED FOR UNKNOWN INDICATION
     Dosage: UNK
     Route: 048

REACTIONS (4)
  - Body temperature increased [Recovered/Resolved]
  - Rash morbilliform [Recovering/Resolving]
  - Vomiting [Recovered/Resolved]
  - Toxic skin eruption [Recovering/Resolving]

NARRATIVE: CASE EVENT DATE: 20201027
